FAERS Safety Report 9605614 (Version 1)
Quarter: 2013Q4

REPORT INFORMATION
  Report Type: Report from Study
  Country: KR (occurrence: KR)
  Receive Date: 20131008
  Receipt Date: 20131008
  Transmission Date: 20140711
  Serious: Yes (Hospitalization)
  Sender: FDA-Public Use
  Company Number: KR-PFIZER INC-2013280109

PATIENT
  Age: 57 Year
  Sex: Male

DRUGS (7)
  1. SUNITINIB MALATE [Suspect]
     Indication: RENAL CELL CARCINOMA
     Dosage: 50 MG, 1X/DAY
     Route: 048
     Dates: start: 20101013
  2. SUNITINIB MALATE [Suspect]
     Dosage: 37.5 MG, 1X/DAY
     Dates: start: 20110910
  3. SUNITINIB MALATE [Suspect]
     Dosage: 50 MG, 1X/DAY
     Dates: start: 20130423, end: 20130902
  4. HARTMANN^S SOLUTION [Concomitant]
     Dosage: UNK
     Dates: start: 20130905, end: 20130911
  5. CIMETIDINE [Concomitant]
     Dosage: UNK
     Dates: start: 20130905, end: 20130906
  6. DICLOFENAC [Concomitant]
     Dosage: UNK
     Dates: start: 20130905, end: 20130905
  7. SODIUM CHLORIDE [Concomitant]
     Dosage: UNK
     Dates: start: 20130905, end: 20130905

REACTIONS (1)
  - Ileus [Not Recovered/Not Resolved]
